FAERS Safety Report 20212170 (Version 1)
Quarter: 2021Q4

REPORT INFORMATION
  Report Type: Spontaneous
  Country: ES (occurrence: ES)
  Receive Date: 20211221
  Receipt Date: 20211221
  Transmission Date: 20220303
  Serious: Yes (Life-Threatening)
  Sender: FDA-Public Use
  Company Number: ES-BAUSCH-BL-2021-041800

PATIENT
  Age: 71 Year
  Sex: Male

DRUGS (1)
  1. ELIDEL [Suspect]
     Active Substance: PIMECROLIMUS
     Indication: Dermatitis atopic
     Dosage: 10 MG/G AND UNK, CYCLE
     Route: 061
     Dates: start: 20160601, end: 20210701

REACTIONS (1)
  - Angiocentric lymphoma [Not Recovered/Not Resolved]
